FAERS Safety Report 24679306 (Version 1)
Quarter: 2024Q4

REPORT INFORMATION
  Report Type: Spontaneous
  Country: US (occurrence: US)
  Receive Date: 20241129
  Receipt Date: 20241129
  Transmission Date: 20250115
  Serious: Yes (Other)
  Sender: AMGEN
  Company Number: US-AMGEN-USASP2024232528

PATIENT
  Age: 52 Year
  Sex: Male

DRUGS (2)
  1. BEVACIZUMAB [Suspect]
     Active Substance: BEVACIZUMAB
     Indication: Retinal neovascularisation
     Dosage: UNK, QMO
  2. PENICILLIN [Concomitant]
     Active Substance: PENICILLIN
     Indication: Eye infection syphilitic
     Route: 030

REACTIONS (4)
  - Retinal cyst [Recovering/Resolving]
  - Retinal pigment epithelium change [Recovering/Resolving]
  - Drug effective for unapproved indication [Unknown]
  - Off label use [Unknown]
